FAERS Safety Report 7273746-8 (Version None)
Quarter: 2011Q1

REPORT INFORMATION
  Report Type: 
  Country: None (occurrence: None)
  Receive Date: 20110203
  Receipt Date: 20110201
  Transmission Date: 20110831
  Serious: Yes (Other)
  Sender: FDA-Public Use
  Company Number: AU-PFIZER INC-2011011056

PATIENT
  Age: 50 Year
  Sex: Female

DRUGS (14)
  1. PHYSEPTONE [Concomitant]
     Indication: ACCIDENT
     Dosage: 40 MG, 1X/DAY
     Route: 048
  2. PHYSEPTONE [Concomitant]
     Indication: PAIN
  3. MULTI-VITAMINS [Concomitant]
  4. IBUPROFEN [Concomitant]
     Indication: ARTHRALGIA
  5. OXAZEPAM [Concomitant]
     Indication: ANXIETY
  6. CHAMPIX [Suspect]
     Indication: SMOKING CESSATION THERAPY
     Dosage: UNK
     Route: 048
     Dates: start: 20101103, end: 20110113
  7. VALIUM [Concomitant]
     Indication: SLEEP DISORDER
     Dosage: 5 MG, UNK
     Route: 048
  8. OXYCONTIN [Concomitant]
     Indication: PAIN
     Dosage: 30 MG, UNK
     Route: 048
  9. VALIUM [Concomitant]
     Indication: ANXIETY
  10. OXAZEPAM [Concomitant]
     Indication: SLEEP DISORDER
  11. FISH OIL [Concomitant]
  12. GLUCOSAMINE [Concomitant]
  13. CYMBALTA [Concomitant]
  14. FLAXSEED OIL [Concomitant]

REACTIONS (6)
  - SKIN LESION [None]
  - FATIGUE [None]
  - ANTIBIOTIC RESISTANT STAPHYLOCOCCUS TEST POSITIVE [None]
  - ARTHROPATHY [None]
  - INFLUENZA LIKE ILLNESS [None]
  - ACNE [None]
